FAERS Safety Report 18263041 (Version 1)
Quarter: 2020Q3

REPORT INFORMATION
  Report Type: Spontaneous
  Country: US (occurrence: US)
  Receive Date: 20200914
  Receipt Date: 20200914
  Transmission Date: 20201103
  Serious: Yes (Death)
  Sender: FDA-Public Use
  Company Number: None

PATIENT
  Age: 56 Year
  Sex: Male
  Weight: 73.03 kg

DRUGS (16)
  1. DIPHENHYDRAMINE HCL [Concomitant]
     Active Substance: DIPHENHYDRAMINE HYDROCHLORIDE
  2. KYPROLIS [Concomitant]
     Active Substance: CARFILZOMIB
  3. LORATADINE. [Concomitant]
     Active Substance: LORATADINE
  4. PROCHLORPERAZINE MALEATE. [Concomitant]
     Active Substance: PROCHLORPERAZINE MALEATE
  5. TYLENOL [Concomitant]
     Active Substance: ACETAMINOPHEN
  6. ACYCLOVIR. [Concomitant]
     Active Substance: ACYCLOVIR
  7. MULTIVITAMIN ADULT [Concomitant]
  8. DEXAMETHASONE. [Concomitant]
     Active Substance: DEXAMETHASONE
  9. OXYCODONE HYDROCHLORIDE. [Concomitant]
     Active Substance: OXYCODONE HYDROCHLORIDE
  10. TRAMADOL HCL [Concomitant]
     Active Substance: TRAMADOL HYDROCHLORIDE
  11. ASPIRIN 81 [Concomitant]
     Active Substance: ASPIRIN
  12. RETACRIT [Concomitant]
     Active Substance: EPOETIN ALFA-EPBX
  13. XPOVIO [Suspect]
     Active Substance: SELINEXOR
     Indication: PLASMA CELL MYELOMA
     Route: 048
     Dates: start: 20200820, end: 20200914
  14. METHYLPREDNISOLONE SODIUM SUCC [Concomitant]
  15. ONDANSETRON HCL [Concomitant]
     Active Substance: ONDANSETRON HYDROCHLORIDE
  16. VITAMIN B?12 ER [Concomitant]

REACTIONS (1)
  - Death [None]

NARRATIVE: CASE EVENT DATE: 20200914
